FAERS Safety Report 5054978-6 (Version None)
Quarter: 2006Q3

REPORT INFORMATION
  Report Type: 
  Country: None (occurrence: None)
  Receive Date: 20060717
  Receipt Date: 20060630
  Transmission Date: 20061208
  Serious: Yes (Hospitalization)
  Sender: FDA-Public Use
  Company Number: 2006RR-02883

PATIENT
  Age: 21 Year
  Sex: Male

DRUGS (2)
  1. FLUOXETINE [Suspect]
     Indication: DEPRESSION
  2. OLANZAPINE [Suspect]
     Dosage: 70 MG, ORAL
     Route: 048

REACTIONS (10)
  - ACCIDENTAL OVERDOSE [None]
  - AKATHISIA [None]
  - AMNESIA [None]
  - DYSTONIA [None]
  - DYSURIA [None]
  - GRIMACING [None]
  - HALLUCINATION, VISUAL [None]
  - MICTURITION URGENCY [None]
  - POSTURE ABNORMAL [None]
  - SINUS TACHYCARDIA [None]
